FAERS Safety Report 15699456 (Version 1)
Quarter: 2018Q4

REPORT INFORMATION
  Report Type: Spontaneous
  Country: US (occurrence: US)
  Receive Date: 20181126
  Receipt Date: 20181126
  Transmission Date: 20190205
  Serious: Yes (Hospitalization)
  Sender: FDA-Public Use
  Company Number: None

PATIENT
  Age: 70 Year
  Sex: Male

DRUGS (1)
  1. AZACITIDINE. [Suspect]
     Active Substance: AZACITIDINE
     Indication: ACUTE MYELOID LEUKAEMIA
     Dosage: ?          OTHER FREQUENCY:UNKNOWN;?
     Route: 042
     Dates: start: 20181015, end: 20181023

REACTIONS (9)
  - Diarrhoea [None]
  - Disease progression [None]
  - Leukocytosis [None]
  - Neutrophilia [None]
  - Viral infection [None]
  - Myelodysplastic syndrome [None]
  - Blood product transfusion dependent [None]
  - Atelectasis [None]
  - Monocytosis [None]

NARRATIVE: CASE EVENT DATE: 20181029
